FAERS Safety Report 14592362 (Version 1)
Quarter: 2018Q1

REPORT INFORMATION
  Report Type: Spontaneous
  Country: US (occurrence: US)
  Receive Date: 20180302
  Receipt Date: 20180302
  Transmission Date: 20180509
  Serious: No
  Sender: FDA-Public Use
  Company Number: US-NOVOPROD-545335

PATIENT
  Age: 56 Year
  Sex: Female
  Weight: 61.24 kg

DRUGS (6)
  1. LANTUS [Concomitant]
     Active Substance: INSULIN GLARGINE
     Indication: TYPE 2 DIABETES MELLITUS
     Dosage: 18 UNITS AT NIGHT
     Route: 058
     Dates: start: 2002
  2. VICTOZA [Suspect]
     Active Substance: LIRAGLUTIDE
     Indication: TYPE 2 DIABETES MELLITUS
     Dosage: 3 TO 4 ^CLICKS^
     Route: 058
     Dates: start: 20170418
  3. METFORMIN [Concomitant]
     Active Substance: METFORMIN HYDROCHLORIDE
     Indication: TYPE 2 DIABETES MELLITUS
     Dosage: 1000 MG, BID AT BREAKFAST AND DINNER
     Route: 048
  4. VICTOZA [Suspect]
     Active Substance: LIRAGLUTIDE
     Dosage: 4 TO 5 ^CLICKS^
     Route: 058
     Dates: start: 20170509, end: 20170509
  5. VICTOZA [Suspect]
     Active Substance: LIRAGLUTIDE
     Dosage: 2 TO 3 ^CLICKS^
     Route: 058
     Dates: start: 20170504, end: 20170504
  6. GLIPIZIDE. [Concomitant]
     Active Substance: GLIPIZIDE
     Indication: TYPE 2 DIABETES MELLITUS
     Dosage: 2 MG, QD
     Route: 048
     Dates: start: 2016

REACTIONS (7)
  - Off label use [Not Recovered/Not Resolved]
  - Product use issue [Unknown]
  - Vision blurred [Recovered/Resolved]
  - Blood glucose decreased [Recovered/Resolved]
  - Blood glucose increased [Recovered/Resolved]
  - Product use complaint [Unknown]
  - Drug effect increased [Unknown]

NARRATIVE: CASE EVENT DATE: 201704
